FAERS Safety Report 6454576-3 (Version None)
Quarter: 2009Q4

REPORT INFORMATION
  Report Type: 
  Country: None (occurrence: None)
  Receive Date: 20091124
  Receipt Date: 20091106
  Transmission Date: 20100525
  Serious: No
  Sender: FDA-Public Use
  Company Number: B0603198A

PATIENT

DRUGS (2)
  1. RELENZA [Suspect]
     Indication: INFLUENZA
     Dosage: 10MG TWICE PER DAY
     Dates: start: 20091106, end: 20091110
  2. CALONAL [Concomitant]
     Dates: start: 20091106, end: 20091110

REACTIONS (1)
  - DRUG EXPOSURE VIA BREAST MILK [None]
